FAERS Safety Report 5981117-7 (Version None)
Quarter: 2008Q4

REPORT INFORMATION
  Report Type: 
  Country: None (occurrence: None)
  Receive Date: 20081202
  Receipt Date: 20081202
  Transmission Date: 20090506
  Serious: Yes (Life-Threatening, Other)
  Sender: FDA-Public Use
  Company Number: None

PATIENT
  Sex: Female
  Weight: 55.7924 kg

DRUGS (1)
  1. LITHIUM CARBONATE [Suspect]
     Indication: BIPOLAR II DISORDER
     Dosage: 2 TABLETS ONCE DAILY PO
     Route: 048
     Dates: start: 20081114, end: 20081117

REACTIONS (21)
  - ABDOMINAL PAIN UPPER [None]
  - ABNORMAL FAECES [None]
  - AGITATION [None]
  - BALANCE DISORDER [None]
  - BURNING SENSATION [None]
  - CHILLS [None]
  - CLUMSINESS [None]
  - DEPRESSION [None]
  - DIARRHOEA [None]
  - DIZZINESS [None]
  - FEELING OF DESPAIR [None]
  - HYPERHIDROSIS [None]
  - LIP ULCERATION [None]
  - NAUSEA [None]
  - PAIN [None]
  - POLLAKIURIA [None]
  - PYREXIA [None]
  - REACTION TO DRUG EXCIPIENTS [None]
  - TREMOR [None]
  - URINE ANALYSIS ABNORMAL [None]
  - VOMITING [None]
